FAERS Safety Report 6898693-2 (Version None)
Quarter: 2010Q3

REPORT INFORMATION
  Report Type: 
  Country: None (occurrence: None)
  Receive Date: 20100802
  Receipt Date: 20071119
  Transmission Date: 20110219
  Serious: Yes (Other)
  Sender: FDA-Public Use
  Company Number: US-PFIZER INC-2007098120

PATIENT
  Sex: Male

DRUGS (2)
  1. LYRICA [Suspect]
     Indication: HERPES ZOSTER
     Route: 048
     Dates: start: 20071101
  2. DRUG USED IN DIABETES [Concomitant]
     Route: 048

REACTIONS (2)
  - LOCAL SWELLING [None]
  - SPEECH DISORDER [None]
